FAERS Safety Report 7323201-1 (Version None)
Quarter: 2011Q1

REPORT INFORMATION
  Report Type: 
  Country: None (occurrence: None)
  Receive Date: 20110301
  Receipt Date: 20110216
  Transmission Date: 20110831
  Serious: No
  Sender: FDA-Public Use
  Company Number: US-ROXANE LABORATORIES, INC.-2011-RO-00231RO

PATIENT
  Sex: Male

DRUGS (2)
  1. METHADONE [Concomitant]
     Indication: DRUG ABUSE
     Dosage: 60 MG
  2. BUPRENORPHINE HCL [Suspect]
     Indication: DRUG ABUSE
     Route: 060
     Dates: start: 20110216, end: 20110216

REACTIONS (6)
  - NAUSEA [None]
  - EUPHORIC MOOD [None]
  - DIZZINESS [None]
  - DIARRHOEA [None]
  - VOMITING [None]
  - ABDOMINAL PAIN UPPER [None]
